FAERS Safety Report 19011031 (Version 5)
Quarter: 2021Q3

REPORT INFORMATION
  Report Type: Spontaneous
  Country: JP (occurrence: JP)
  Receive Date: 20210316
  Receipt Date: 20210716
  Transmission Date: 20211014
  Serious: Yes (Hospitalization, Other)
  Sender: FDA-Public Use
  Company Number: JP-JNJFOC-20210325477

PATIENT
  Age: 76 Year
  Sex: Female
  Weight: 41 kg

DRUGS (2)
  1. SIMPONI [Suspect]
     Active Substance: GOLIMUMAB
     Indication: RHEUMATOID ARTHRITIS
     Route: 058
     Dates: start: 20121009, end: 20210202
  2. RHEUMATREX [Concomitant]
     Active Substance: METHOTREXATE SODIUM
     Indication: RHEUMATOID ARTHRITIS
     Route: 048
     Dates: start: 201711

REACTIONS (1)
  - Colon cancer [Recovering/Resolving]

NARRATIVE: CASE EVENT DATE: 20210116
